FAERS Safety Report 5574707-7 (Version None)
Quarter: 2007Q4

REPORT INFORMATION
  Report Type: 
  Country: None (occurrence: None)
  Receive Date: 20071227
  Receipt Date: 20071221
  Transmission Date: 20080405
  Serious: Yes (Death)
  Sender: FDA-Public Use
  Company Number: IT-BRACCO-BCM-001402

PATIENT
  Sex: Male

DRUGS (12)
  1. IOPAMIRO [Suspect]
     Indication: ANGIOGRAM
     Route: 042
     Dates: start: 20071203, end: 20071203
  2. SODIUM BICARBONATE [Concomitant]
     Route: 065
     Dates: start: 20071203
  3. DOPAMINE HCL [Concomitant]
     Dosage: 12 MCG/KG/MIN
     Route: 065
     Dates: start: 20071203
  4. ANCATROPINE                        /00303401/ [Concomitant]
     Route: 065
     Dates: start: 20071203
  5. ADRENALINE [Concomitant]
     Route: 039
     Dates: start: 20071203
  6. OXYGEN [Concomitant]
     Route: 055
     Dates: start: 20071203
  7. ISOSORBIDE DINITRATE [Concomitant]
     Route: 060
     Dates: start: 20071203, end: 20071203
  8. BETABLOCKERS [Concomitant]
     Route: 065
  9. ISOSORBIDE DINITRATE [Concomitant]
     Route: 065
  10. ASPIRIN [Concomitant]
     Route: 065
  11. NEBIVOLOLO [Concomitant]
     Route: 065
  12. METOPROLOL TARTRATE [Suspect]
     Indication: ANGIOGRAM
     Route: 042
     Dates: start: 20071203, end: 20071203

REACTIONS (2)
  - DYSPNOEA [None]
  - PULMONARY OEDEMA [None]
